FAERS Safety Report 23430518 (Version 1)
Quarter: 2024Q1

REPORT INFORMATION
  Report Type: Report from Study
  Country: ZA (occurrence: ZA)
  Receive Date: 20240123
  Receipt Date: 20240123
  Transmission Date: 20240410
  Serious: Yes (Death)
  Sender: FDA-Public Use
  Company Number: ZA-AstraZeneca-2024A015741

PATIENT
  Age: 257 Day
  Sex: Female
  Weight: 1.1 kg

DRUGS (1)
  1. SYNAGIS [Suspect]
     Active Substance: PALIVIZUMAB
     Indication: Respiratory syncytial virus infection
     Route: 030
     Dates: start: 20240112

REACTIONS (1)
  - Death [Fatal]

NARRATIVE: CASE EVENT DATE: 20240115
